FAERS Safety Report 14140378 (Version 1)
Quarter: 2017Q4

REPORT INFORMATION
  Report Type: Spontaneous
  Country: US (occurrence: None)
  Receive Date: 20171027
  Receipt Date: 20171027
  Transmission Date: 20180321
  Serious: Yes (Hospitalization)
  Sender: FDA-Public Use
  Company Number: None

PATIENT
  Age: 31 Year
  Sex: Male

DRUGS (1)
  1. WARFARIN [Suspect]
     Active Substance: WARFARIN
     Route: 048
     Dates: start: 20170825, end: 20171027

REACTIONS (5)
  - Subdural haemorrhage [None]
  - Haemorrhage intracranial [None]
  - Headache [None]
  - Pyrexia [None]
  - Haemorrhage [None]

NARRATIVE: CASE EVENT DATE: 20171027
